FAERS Safety Report 8597390-5 (Version None)
Quarter: 2012Q3

REPORT INFORMATION
  Report Type: 
  Country: None (occurrence: None)
  Receive Date: 20120801
  Receipt Date: 20120724
  Transmission Date: 20120928
  Serious: Yes (Other)
  Sender: FDA-Public Use
  Company Number: AUR-APL-2012-03213

PATIENT
  Age: 36 Year
  Sex: Male
  Weight: 126 kg

DRUGS (5)
  1. FEXOFENADINE HCL [Concomitant]
  2. DIAMICRON MR (GLICLAZIDE) [Concomitant]
  3. OMEGA-3 FISH OIL  (OMEGA-3 FATTY ACIDS) [Suspect]
     Indication: PRODUCT USED FOR UNKNOWN INDICATION
  4. GLUCOPHAGE SR (METFORMIN) [Concomitant]
  5. SIMVASTATIN [Suspect]
     Indication: DIABETES MELLITUS
     Dosage: 40 MG (20 MG,2 IN 1 D), ORAL
     Route: 048
     Dates: start: 20120528, end: 20120610

REACTIONS (10)
  - EYE SWELLING [None]
  - HEADACHE [None]
  - VISION BLURRED [None]
  - EYE PRURITUS [None]
  - DIARRHOEA [None]
  - DIZZINESS [None]
  - DRY EYE [None]
  - HYPERGLYCAEMIA [None]
  - NAUSEA [None]
  - DRUG INTERACTION [None]
